FAERS Safety Report 4472659-4 (Version None)
Quarter: 2004Q4

REPORT INFORMATION
  Report Type: 
  Country: None (occurrence: None)
  Receive Date: 20041012
  Receipt Date: 20041012
  Transmission Date: 20050328
  Serious: No
  Sender: FDA-Public Use
  Company Number: None

PATIENT
  Age: 56 Year
  Sex: Male

DRUGS (3)
  1. PHENYTOIN [Suspect]
     Indication: CONVULSION
     Dosage: 100 MG PO QID LAST REFILL 9/9/04
     Dates: end: 20040909
  2. PHENYTOIN [Suspect]
     Indication: DEPRESSION
     Dosage: 100 MG PO QID LAST REFILL 9/9/04
     Dates: end: 20040909
  3. PHENYTOIN [Suspect]
     Indication: HYPERSENSITIVITY
     Dosage: 100 MG PO QID LAST REFILL 9/9/04
     Dates: end: 20040909

REACTIONS (3)
  - CONDITION AGGRAVATED [None]
  - CONVULSION [None]
  - URTICARIA [None]
